FAERS Safety Report 8594855-7 (Version None)
Quarter: 2012Q3

REPORT INFORMATION
  Report Type: 
  Country: None (occurrence: None)
  Receive Date: 20120815
  Receipt Date: 20120806
  Transmission Date: 20120928
  Serious: Yes (Other)
  Sender: FDA-Public Use
  Company Number: JP-JNJFOC-20120801450

PATIENT
  Sex: Male

DRUGS (2)
  1. STELARA [Suspect]
     Indication: PSORIASIS
     Route: 058
     Dates: start: 20120629, end: 20120727
  2. ISONIAZID [Suspect]
     Indication: ANTIBIOTIC PROPHYLAXIS
     Dates: start: 20120601, end: 20120727

REACTIONS (1)
  - LIVER DISORDER [None]
